FAERS Safety Report 25493764 (Version 1)
Quarter: 2025Q2

REPORT INFORMATION
  Report Type: Spontaneous
  Country: CA (occurrence: CA)
  Receive Date: 20250630
  Receipt Date: 20250630
  Transmission Date: 20250717
  Serious: Yes (Hospitalization, Other)
  Sender: BRACCO
  Company Number: CA-BRACCO-2025CA04197

PATIENT
  Age: 79 Year
  Sex: Female

DRUGS (11)
  1. ISOVUE [Suspect]
     Active Substance: IOPAMIDOL
     Indication: Computerised tomogram
     Route: 042
  2. BREZTRI [Concomitant]
     Active Substance: BUDESONIDE\FORMOTEROL\GLYCOPYRROLATE
  3. DILAUDID [Concomitant]
     Active Substance: HYDROMORPHONE HYDROCHLORIDE
  4. MOMETASONE FUROATE [Concomitant]
     Active Substance: MOMETASONE FUROATE
  5. PROLIA [Concomitant]
     Active Substance: DENOSUMAB
  6. RANITIDINE [Concomitant]
     Active Substance: RANITIDINE
  7. TRESIBA [Concomitant]
     Active Substance: INSULIN DEGLUDEC
  8. TYLENOL [Concomitant]
     Active Substance: ACETAMINOPHEN
  9. VENTOLIN [Concomitant]
     Active Substance: ALBUTEROL SULFATE
  10. VITAMIN D [Concomitant]
     Active Substance: VITAMIN D NOS
  11. DICLOFENAC DIETHYLAMINE [Concomitant]
     Active Substance: DICLOFENAC DIETHYLAMINE

REACTIONS (5)
  - Renal failure [Recovering/Resolving]
  - Dermatitis allergic [Recovering/Resolving]
  - Documented hypersensitivity to administered product [Recovering/Resolving]
  - Rash morbilliform [Recovering/Resolving]
  - Rash pruritic [Recovering/Resolving]
